FAERS Safety Report 7357589-2 (Version None)
Quarter: 2011Q1

REPORT INFORMATION
  Report Type: 
  Country: None (occurrence: None)
  Receive Date: 20110317
  Receipt Date: 20110307
  Transmission Date: 20110831
  Serious: Yes (Death, Life-Threatening, Hospitalization, Disabling, Other)
  Sender: FDA-Public Use
  Company Number: US-CELGENEUS-163-21880-10112561

PATIENT
  Sex: Female
  Weight: 83.536 kg

DRUGS (10)
  1. REVLIMID [Suspect]
     Dosage: 10 MILLIGRAM
     Route: 048
     Dates: start: 20100401
  2. ASPIRIN [Concomitant]
     Dosage: 325 MILLIGRAM
     Route: 065
  3. REVLIMID [Suspect]
     Dosage: 5 MILLIGRAM
     Route: 048
     Dates: start: 20101001, end: 20101101
  4. WHOLE BLOOD [Concomitant]
     Route: 051
  5. METOLAZONE [Concomitant]
     Dosage: 5
     Route: 065
  6. ANTIBIOTICS [Concomitant]
     Route: 065
  7. MULTI-VITAMINS [Concomitant]
     Dosage: 1
     Route: 065
  8. DIOVAN [Concomitant]
     Dosage: 80
     Route: 065
  9. PREDNISONE [Concomitant]
     Dosage: 30 MILLIGRAM
     Route: 065
     Dates: start: 20100701
  10. FOSAMAX [Concomitant]
     Route: 065
     Dates: end: 20100701

REACTIONS (13)
  - ANAEMIA [None]
  - CEREBROVASCULAR ACCIDENT [None]
  - DEEP VEIN THROMBOSIS [None]
  - DEATH [None]
  - SEPTIC SHOCK [None]
  - ATRIAL FIBRILLATION [None]
  - THROMBOCYTOPENIA [None]
  - GANGRENE [None]
  - GASTROENTERITIS [None]
  - SMALL INTESTINAL OBSTRUCTION [None]
  - NEUTROPENIA [None]
  - MULTI-ORGAN FAILURE [None]
  - RENAL FAILURE ACUTE [None]
